FAERS Safety Report 9676957 (Version 1)
Quarter: 2013Q4

REPORT INFORMATION
  Report Type: Spontaneous
  Country: GB (occurrence: GB)
  Receive Date: 20131108
  Receipt Date: 20131108
  Transmission Date: 20140711
  Serious: Yes (Other)
  Sender: FDA-Public Use
  Company Number: GB-ROCHE-1297682

PATIENT
  Age: 54 Year
  Sex: Female

DRUGS (8)
  1. ORLISTAT [Suspect]
     Indication: OBESITY
     Route: 065
     Dates: start: 200508, end: 200604
  2. METFORMIN [Concomitant]
     Route: 065
  3. PERINDOPRIL [Concomitant]
  4. LEVOTHYROXINE [Concomitant]
  5. CLOMIPRAMINE [Concomitant]
  6. ATENOLOL [Concomitant]
  7. ASPIRIN [Concomitant]
  8. ESTRADIOL [Concomitant]

REACTIONS (1)
  - Renal impairment [Unknown]
